FAERS Safety Report 6304896-8 (Version None)
Quarter: 2009Q3

REPORT INFORMATION
  Report Type: 
  Country: None (occurrence: None)
  Receive Date: 20090811
  Receipt Date: 20090731
  Transmission Date: 20100115
  Serious: No
  Sender: FDA-Public Use
  Company Number: US-ELI_LILLY_AND_COMPANY-US200903004265

PATIENT
  Sex: Female
  Weight: 93.878 kg

DRUGS (5)
  1. ZYPREXA [Suspect]
     Dosage: 1 D/F, UNK
     Dates: start: 19960101
  2. DULOXETINE HYDROCHLORIDE [Concomitant]
     Dates: start: 20040101
  3. PROZAC [Concomitant]
  4. WELLBUTRIN [Concomitant]
  5. ZIPRASIDONE HCL [Concomitant]
     Dates: start: 20080101

REACTIONS (7)
  - BLOOD CHOLESTEROL INCREASED [None]
  - BLOOD TRIGLYCERIDES INCREASED [None]
  - DIABETES MELLITUS [None]
  - HYPERTENSION [None]
  - OBESITY [None]
  - OVERDOSE [None]
  - WEIGHT INCREASED [None]
